FAERS Safety Report 23303554 (Version 5)
Quarter: 2024Q1

REPORT INFORMATION
  Report Type: Spontaneous
  Country: US (occurrence: US)
  Receive Date: 20231215
  Receipt Date: 20240328
  Transmission Date: 20240410
  Serious: Yes (Other)
  Sender: FDA-Public Use
  Company Number: US-Calliditas-2023CAL01602

PATIENT
  Age: 41 Year
  Sex: Female

DRUGS (4)
  1. TARPEYO [Suspect]
     Active Substance: BUDESONIDE
     Indication: IgA nephropathy
     Dosage: 16 MG (4 MG CAPSULES) ONCE DAILY
     Route: 048
     Dates: start: 20231116
  2. LISINOPRIL [Concomitant]
     Active Substance: LISINOPRIL
  3. FISH OIL [Concomitant]
     Active Substance: FISH OIL
  4. PROBIOTICS BOWEL SUPPORT [Concomitant]

REACTIONS (7)
  - Nasopharyngitis [Unknown]
  - Product dose omission issue [Recovered/Resolved]
  - Brain fog [Recovered/Resolved]
  - Central serous chorioretinopathy [Not Recovered/Not Resolved]
  - Cushingoid [Unknown]
  - Weight increased [Unknown]
  - Tooth abscess [Unknown]

NARRATIVE: CASE EVENT DATE: 20231117
